FAERS Safety Report 4970652-6 (Version None)
Quarter: 2006Q2

REPORT INFORMATION
  Report Type: 
  Country: None (occurrence: None)
  Receive Date: 20060412
  Receipt Date: 20051028
  Transmission Date: 20061013
  Serious: Yes (Death, Hospitalization, Other)
  Sender: FDA-Public Use
  Company Number: PHHO2005US17123

PATIENT
  Age: 79 Year
  Sex: Female
  Weight: 58 kg

DRUGS (23)
  1. ZOLEDRONIC ACID VS PLACEBO [Suspect]
     Indication: METASTASES TO BONE
     Dosage: 4 MG, UNK
     Route: 042
     Dates: start: 20051007
  2. TAXOTERE [Suspect]
     Indication: NON-SMALL CELL LUNG CANCER
     Dosage: 120 MG, UNK
     Route: 042
     Dates: start: 20051007
  3. CARBOPLATIN [Suspect]
     Indication: NON-SMALL CELL LUNG CANCER
     Dosage: UNK, UNK
     Dates: start: 20051007
  4. VITAMIN D [Concomitant]
     Indication: METASTASES TO BONE
  5. CALCIUM GLUCONATE [Concomitant]
     Indication: METASTASES TO BONE
  6. LEXAPRO [Concomitant]
     Dosage: 10 MG, QD
  7. DIOVAN [Concomitant]
     Dosage: 80 MG, QD
  8. ASPIRIN [Concomitant]
     Dosage: 81 MG, QD
  9. MULTI-VITAMIN [Concomitant]
     Dosage: UNK, QD
  10. ANZEMET [Concomitant]
     Indication: NAUSEA
     Dosage: 100 MG, UNK
  11. NEXIUM [Concomitant]
     Dosage: 40 MG, QD
  12. KLONOPIN [Concomitant]
     Dosage: 0.5 MG, PRN
  13. MORPHINE [Concomitant]
     Dosage: 15 MG, UNK
  14. DURAGESIC-100 [Concomitant]
     Dosage: UNK, UNK
  15. AMBIEN [Concomitant]
     Dosage: 10 MG, QHS
  16. TYLENOL (CAPLET) [Concomitant]
  17. AMIODARONE [Concomitant]
     Dosage: 200 MG, BID
  18. OXYGEN [Concomitant]
     Dosage: UNK, PRN
  19. OXYCODONE [Concomitant]
     Dosage: 5 MG, UNK
  20. METHADONE [Concomitant]
  21. PERCOCET [Concomitant]
  22. RESTORIL [Concomitant]
  23. DOBUTREX [Concomitant]
     Indication: HYPOTENSION

REACTIONS (38)
  - ANAEMIA [None]
  - ANXIETY [None]
  - APNOEA [None]
  - ARTHRALGIA [None]
  - ASTHENIA [None]
  - BRAIN NATRIURETIC PEPTIDE INCREASED [None]
  - CARDIAC DISORDER [None]
  - CARDIAC FAILURE CONGESTIVE [None]
  - CARDIOMEGALY [None]
  - CATHETER RELATED INFECTION [None]
  - CONFUSIONAL STATE [None]
  - CONGESTIVE CARDIOMYOPATHY [None]
  - CONTUSION [None]
  - DEHYDRATION [None]
  - DELIRIUM [None]
  - DIZZINESS [None]
  - DRUG INTERACTION [None]
  - DYSPNOEA [None]
  - FALL [None]
  - FIBRIN D DIMER INCREASED [None]
  - GENERAL PHYSICAL HEALTH DETERIORATION [None]
  - HAEMATOCRIT DECREASED [None]
  - HYPOTENSION [None]
  - LEUKOCYTOSIS [None]
  - MYOCARDIAL INFARCTION [None]
  - OEDEMA PERIPHERAL [None]
  - OXYGEN SATURATION DECREASED [None]
  - PLEURAL EFFUSION [None]
  - PNEUMONIA [None]
  - PNEUMOTHORAX [None]
  - PULMONARY OEDEMA [None]
  - PULSE ABSENT [None]
  - RESPIRATORY DISTRESS [None]
  - SEPSIS [None]
  - TROPONIN INCREASED [None]
  - URINARY TRACT INFECTION [None]
  - WHITE BLOOD CELLS URINE POSITIVE [None]
  - WRIST FRACTURE [None]
